FAERS Safety Report 4961520-4 (Version None)
Quarter: 2006Q1

REPORT INFORMATION
  Report Type: 
  Country: None (occurrence: None)
  Receive Date: 20060329
  Receipt Date: 20060320
  Transmission Date: 20060701
  Serious: Yes (Hospitalization)
  Sender: FDA-Public Use
  Company Number: 2005160833

PATIENT
  Age: 75 Year
  Sex: Female

DRUGS (10)
  1. AROMASIN [Suspect]
     Indication: BREAST CANCER
     Dosage: 25 MG (25 MG, DAILY), ORAL
     Route: 048
     Dates: start: 20050323, end: 20050603
  2. COZAAR [Concomitant]
  3. AMITRIPTYLINE (AMITRIPTYLINE) [Concomitant]
  4. OXAZEPAM [Concomitant]
  5. SIMVASTATIN [Concomitant]
  6. MIXTARD HUMAN 70/30 [Concomitant]
  7. MOVICOLON (MACROGOL, POTASSIUM CHLORIDE, SODIUM BICARBONATE, SODIUM CH [Concomitant]
  8. METAMUCIL ^SEARLE^ (PSYLLIUM HYDROPHILIC MUCILLOID) [Concomitant]
  9. METFORMIN HCL [Concomitant]
  10. DEPONIT (GLYCERYL TRINITRATE) [Concomitant]

REACTIONS (4)
  - AMNESIA [None]
  - COGNITIVE DISORDER [None]
  - DROP ATTACKS [None]
  - POLYNEUROPATHY [None]
